FAERS Safety Report 17818028 (Version 4)
Quarter: 2020Q2

REPORT INFORMATION
  Report Type: Report from Study
  Country: None (occurrence: CO)
  Receive Date: 20200522
  Receipt Date: 20200617
  Transmission Date: 20200714
  Serious: Yes (Hospitalization)
  Sender: FDA-Public Use
  Company Number: CO-ABBVIE-20K-036-3415095-00

PATIENT
  Age: 29 Year
  Sex: Male
  Weight: 62 kg

DRUGS (1)
  1. ZEMPLAR [Suspect]
     Active Substance: PARICALCITOL
     Indication: HYPERPARATHYROIDISM SECONDARY
     Dosage: POST DIALYSIS
     Route: 042
     Dates: start: 20180222, end: 20200513

REACTIONS (3)
  - Furuncle [Recovering/Resolving]
  - Infection [Recovering/Resolving]
  - Furuncle [Recovering/Resolving]

NARRATIVE: CASE EVENT DATE: 201911
